FAERS Safety Report 6731834-6 (Version None)
Quarter: 2010Q2

REPORT INFORMATION
  Report Type: 
  Country: None (occurrence: None)
  Receive Date: 20100519
  Receipt Date: 20100513
  Transmission Date: 20101027
  Serious: Yes (Death, Other)
  Sender: FDA-Public Use
  Company Number: PHHY2010AU24580

PATIENT
  Sex: Male

DRUGS (5)
  1. CLOZARIL [Suspect]
     Dosage: 325 MG, DAILY
     Route: 048
     Dates: start: 20080603, end: 20100301
  2. MADOPAR [Concomitant]
     Indication: PARKINSON'S DISEASE
     Dosage: 6/DAY
     Route: 048
  3. ENTACAPONE [Concomitant]
     Indication: PARKINSON'S DISEASE
     Dosage: 6/DAY
     Route: 048
  4. DOMPERIDONE [Concomitant]
     Indication: PARKINSON'S DISEASE
     Dosage: 3/DAY
     Route: 048
  5. BENZTROPINE MESYLATE [Concomitant]
     Indication: PARKINSON'S DISEASE
     Dosage: B.D.

REACTIONS (2)
  - ASPIRATION [None]
  - MOBILITY DECREASED [None]
